FAERS Safety Report 25681825 (Version 1)
Quarter: 2025Q3

REPORT INFORMATION
  Report Type: Spontaneous
  Country: CN (occurrence: CN)
  Receive Date: 20250814
  Receipt Date: 20250814
  Transmission Date: 20251020
  Serious: Yes (Other)
  Sender: ORGANON
  Company Number: CN-ORGANON-O2508CHN001084

PATIENT
  Age: 95 Year
  Sex: Female
  Weight: 46 kg

DRUGS (2)
  1. SINGULAIR [Suspect]
     Active Substance: MONTELUKAST SODIUM
     Indication: Bronchiectasis
     Dosage: ORAL, 10MG, QD
     Route: 048
     Dates: start: 20250801, end: 20250805
  2. SINGULAIR [Suspect]
     Active Substance: MONTELUKAST SODIUM
     Indication: Infection

REACTIONS (3)
  - Mental disorder [Recovering/Resolving]
  - Sleep disorder [Recovering/Resolving]
  - Product use in unapproved indication [Unknown]

NARRATIVE: CASE EVENT DATE: 20250801
